FAERS Safety Report 7298202-2 (Version None)
Quarter: 2011Q1

REPORT INFORMATION
  Report Type: 
  Country: None (occurrence: None)
  Receive Date: 20110217
  Receipt Date: 20110208
  Transmission Date: 20110831
  Serious: Yes (Other)
  Sender: FDA-Public Use
  Company Number: PR-ABBOTT-11P-163-0699994-00

PATIENT
  Sex: Female
  Weight: 63.56 kg

DRUGS (10)
  1. SIMVASTATIN [Concomitant]
     Indication: BLOOD CHOLESTEROL INCREASED
  2. ADVAIR [Concomitant]
     Indication: ASTHMA
     Route: 055
  3. PREDNISONE TAB [Concomitant]
     Indication: ASTHMA
     Route: 048
  4. HUMIRA [Suspect]
     Indication: RHEUMATOID ARTHRITIS
     Route: 058
     Dates: start: 20080101, end: 20101230
  5. THEO-24 [Concomitant]
     Indication: ASTHMA
     Route: 048
  6. SINGULAIR [Concomitant]
     Indication: ASTHMA
     Route: 048
  7. VASOTEC [Concomitant]
     Indication: HYPERTENSION
     Dosage: 1 TABLET TWO TIMES DAILY
  8. FOLIC ACID [Concomitant]
     Indication: VITAMIN SUPPLEMENTATION
  9. ALBUTEROL [Concomitant]
     Indication: ASTHMA
  10. CALCIUM 600 PLUS VITAMIN D [Concomitant]
     Indication: VITAMIN SUPPLEMENTATION
     Route: 048

REACTIONS (3)
  - BASAL CELL CARCINOMA [None]
  - SKIN MASS [None]
  - PALPITATIONS [None]
